FAERS Safety Report 20825860 (Version 1)
Quarter: 2022Q2

REPORT INFORMATION
  Report Type: Report from Study
  Country: LT (occurrence: LT)
  Receive Date: 20220513
  Receipt Date: 20220513
  Transmission Date: 20220721
  Serious: Yes (Other)
  Sender: FDA-Public Use
  Company Number: LT-ROCHE-2940818

PATIENT
  Age: 73 Year
  Sex: Male
  Weight: 68 kg

DRUGS (14)
  1. PACLITAXEL [Suspect]
     Active Substance: PACLITAXEL
     Indication: Non-small cell lung cancer metastatic
     Dosage: UNIT DOSE :338 MG
     Route: 065
     Dates: start: 20210715
  2. CARBOPLATIN [Suspect]
     Active Substance: CARBOPLATIN
     Indication: Non-small cell lung cancer metastatic
     Dosage: UNIT DOSE :800 MG
     Route: 065
     Dates: start: 20210715
  3. ATEZOLIZUMAB [Suspect]
     Active Substance: ATEZOLIZUMAB
     Indication: Non-small cell lung cancer metastatic
     Dosage: DATE OF MOST RECENT DOSE OF ATEZOLIZUMAB 1200MG PRIOR TO ADVERSE EVENT (AE) : 21/SEP/2021 AND 14/OCT
     Route: 042
     Dates: start: 20210714
  4. BEVACIZUMAB [Suspect]
     Active Substance: BEVACIZUMAB
     Indication: Non-small cell lung cancer metastatic
     Dosage: UNIT DOSE: 1050 MG
     Route: 065
     Dates: start: 20210715
  5. ASPIRIN [Concomitant]
     Active Substance: ASPIRIN
     Dosage: FREQUENCY:1 DAYS
     Dates: start: 20220212, end: 20220218
  6. RAMIPRIL [Concomitant]
     Active Substance: RAMIPRIL
     Dosage: FREQUENCY:1 DAYS
     Dates: start: 20220212, end: 20220218
  7. NADROPARIN CALCIUM [Concomitant]
     Active Substance: NADROPARIN CALCIUM
     Dosage: FREQUENCY:0.5  DAYS
     Dates: start: 20220213, end: 20220218
  8. GLICLAZIDE [Concomitant]
     Active Substance: GLICLAZIDE
     Dosage: FREQUENCY:1 DAYS
  9. METOPROLOL [Concomitant]
     Active Substance: METOPROLOL
     Dosage: FREQUENCY:0.5  DAYS
     Dates: start: 20220212, end: 20220218
  10. FILGRASTIM [Concomitant]
     Active Substance: FILGRASTIM
     Indication: Prophylaxis
     Dosage: FREQUENCY 1 MONTHS
     Dates: start: 20210716, end: 20210924
  11. METFORMIN [Concomitant]
     Active Substance: METFORMIN HYDROCHLORIDE
     Dosage: FREQUENCY:0.33  DAYS
  12. ATORVASTATIN [Concomitant]
     Active Substance: ATORVASTATIN
     Dosage: FREQUENCY:1 DAYS
     Dates: start: 20220212, end: 20220218
  13. CLOPIDOGREL [Concomitant]
     Active Substance: CLOPIDOGREL BISULFATE
     Dosage: FREQUENCY:1 DAYS
     Dates: start: 20220212, end: 20220213
  14. TICAGRELOR [Concomitant]
     Active Substance: TICAGRELOR
     Dosage: FREQUENCY:1 DAYS
     Dates: start: 20220212, end: 20220212

REACTIONS (7)
  - Thrombocytopenia [Recovered/Resolved]
  - Hyperthyroidism [Not Recovered/Not Resolved]
  - Neutropenia [Recovered/Resolved]
  - Polyneuropathy [Not Recovered/Not Resolved]
  - Proteinuria [Not Recovered/Not Resolved]
  - Fatigue [Recovered/Resolved]
  - Decreased appetite [Recovered/Resolved]

NARRATIVE: CASE EVENT DATE: 20210801
